FAERS Safety Report 22179122 (Version 1)
Quarter: 2023Q2

REPORT INFORMATION
  Report Type: Spontaneous
  Country: CH (occurrence: CH)
  Receive Date: 20230406
  Receipt Date: 20230406
  Transmission Date: 20230721
  Serious: Yes (Disabling)
  Sender: FDA-Public Use
  Company Number: CH-ALM-HQ-CH-2023-0796

PATIENT
  Sex: Female

DRUGS (1)
  1. TIRBANIBULIN [Suspect]
     Active Substance: TIRBANIBULIN

REACTIONS (1)
  - Post inflammatory pigmentation change [Not Recovered/Not Resolved]
